FAERS Safety Report 6242404-0 (Version None)
Quarter: 2009Q2

REPORT INFORMATION
  Report Type: 
  Country: None (occurrence: None)
  Receive Date: 20090622
  Receipt Date: 20090622
  Transmission Date: 20091009
  Serious: Yes (Hospitalization)
  Sender: FDA-Public Use
  Company Number: None

PATIENT
  Sex: Male
  Weight: 80.4 kg

DRUGS (2)
  1. CEFTRIAXONE [Suspect]
     Indication: ALPHA HAEMOLYTIC STREPTOCOCCAL INFECTION
     Dosage: 2 GRAM Q24H IV DRIP
     Route: 041
     Dates: start: 20090210, end: 20090310
  2. CEFTRIAXONE [Suspect]
     Indication: ENDOCARDITIS
     Dosage: 2 GRAM Q24H IV DRIP
     Route: 041
     Dates: start: 20090210, end: 20090310

REACTIONS (11)
  - BLOOD CULTURE POSITIVE [None]
  - CAPNOCYTOPHAGIA INFECTION [None]
  - COUGH [None]
  - DYSPHAGIA [None]
  - FATIGUE [None]
  - MUCOSAL INFLAMMATION [None]
  - NEUTROPENIA [None]
  - ODYNOPHAGIA [None]
  - ORAL PAIN [None]
  - PYREXIA [None]
  - RENAL FAILURE ACUTE [None]
